FAERS Safety Report 23763375 (Version 1)
Quarter: 2024Q2

REPORT INFORMATION
  Report Type: Spontaneous
  Country: US (occurrence: None)
  Receive Date: 20240419
  Receipt Date: 20240419
  Transmission Date: 20240716
  Serious: Yes (Death)
  Sender: FDA-Public Use
  Company Number: None

PATIENT
  Age: 70 Year
  Sex: Female

DRUGS (1)
  1. OFEV [Suspect]
     Active Substance: NINTEDANIB
     Indication: Idiopathic pulmonary fibrosis
     Dosage: 150MG BID ORAL
     Route: 048
     Dates: start: 20240202, end: 20240415

REACTIONS (4)
  - General physical health deterioration [None]
  - Interstitial lung disease [None]
  - Disease progression [None]
  - Acute respiratory failure [None]

NARRATIVE: CASE EVENT DATE: 20240415
